FAERS Safety Report 6689999-0 (Version None)
Quarter: 2010Q2

REPORT INFORMATION
  Report Type: 
  Country: None (occurrence: None)
  Receive Date: 20100421
  Receipt Date: 20100409
  Transmission Date: 20101027
  Serious: Yes (Hospitalization)
  Sender: FDA-Public Use
  Company Number: PHHY2010US23111

PATIENT
  Sex: Female
  Weight: 82 kg

DRUGS (7)
  1. ZOMETA [Suspect]
     Indication: METASTASES TO BONE
     Dosage: 4 MG, EVERY 4 WEEKS
     Route: 042
     Dates: start: 20050616, end: 20091211
  2. AREDIA [Suspect]
     Indication: METASTASES TO BONE
     Dosage: 90 MG, QMO
     Dates: start: 20090108
  3. ARIMIDEX [Concomitant]
     Indication: BREAST CANCER
     Dosage: 1 MG DAILY
     Route: 048
     Dates: start: 19990720
  4. SYNTHROID [Concomitant]
  5. NORVASC [Concomitant]
  6. LEVOTHYROXINE [Concomitant]
  7. AMLODIPINE [Concomitant]

REACTIONS (16)
  - ABSCESS SOFT TISSUE [None]
  - ALPHA HAEMOLYTIC STREPTOCOCCAL INFECTION [None]
  - BACK PAIN [None]
  - BONE EROSION [None]
  - BONE PAIN [None]
  - CHILLS [None]
  - GINGIVAL SWELLING [None]
  - HAEMOGLOBIN DECREASED [None]
  - LYMPHADENOPATHY [None]
  - MALAISE [None]
  - ORAL SURGERY [None]
  - OSTEONECROSIS [None]
  - PAIN IN JAW [None]
  - PYREXIA [None]
  - STAPHYLOCOCCAL INFECTION [None]
  - TOOTH ABSCESS [None]
